FAERS Safety Report 24773066 (Version 1)
Quarter: 2024Q4

REPORT INFORMATION
  Report Type: Spontaneous
  Country: US (occurrence: US)
  Receive Date: 20241225
  Receipt Date: 20241225
  Transmission Date: 20250115
  Serious: Yes (Hospitalization)
  Sender: AMGEN
  Company Number: US-AMGEN-USASP2024250980

PATIENT
  Age: 26 Year
  Sex: Male

DRUGS (1)
  1. PREDNISONE [Suspect]
     Active Substance: PREDNISONE
     Indication: Colitis ulcerative
     Dosage: 40 MILLIGRAM, QD
     Route: 065

REACTIONS (2)
  - Clostridium difficile colitis [Recovering/Resolving]
  - Cytomegalovirus colitis [Recovering/Resolving]
